FAERS Safety Report 24924506 (Version 1)
Quarter: 2025Q1

REPORT INFORMATION
  Report Type: Report from Study
  Country: US (occurrence: US)
  Receive Date: 20250204
  Receipt Date: 20250204
  Transmission Date: 20250408
  Serious: Yes (Hospitalization)
  Sender: JOHNSON AND JOHNSON
  Company Number: US-JNJFOC-20250171068

PATIENT
  Age: 78 Year
  Sex: Female
  Weight: 99.79 kg

DRUGS (3)
  1. VELETRI [Suspect]
     Active Substance: EPOPROSTENOL
     Indication: Pulmonary arterial hypertension
     Route: 042
  2. LETAIRIS [Concomitant]
     Active Substance: AMBRISENTAN
  3. WARFARIN [Concomitant]
     Active Substance: WARFARIN

REACTIONS (5)
  - Device occlusion [Unknown]
  - Arthritis [Unknown]
  - Device alarm issue [Unknown]
  - Product administration interrupted [Unknown]
  - Underdose [Unknown]

NARRATIVE: CASE EVENT DATE: 20250121
